FAERS Safety Report 18056029 (Version 1)
Quarter: 2020Q3

REPORT INFORMATION
  Report Type: Spontaneous
  Country: US (occurrence: US)
  Receive Date: 20200722
  Receipt Date: 20200722
  Transmission Date: 20201103
  Serious: No
  Sender: FDA-Public Use
  Company Number: US-RECRO GAINESVILLE LLC-REPH-2019-000097

PATIENT
  Sex: Female

DRUGS (1)
  1. VERAPAMIL HYDROCHLORIDE SUSTAINED RELEASE [Suspect]
     Active Substance: VERAPAMIL HYDROCHLORIDE
     Indication: MIGRAINE PROPHYLAXIS
     Dosage: 180 MILLIGRAM, QD
     Route: 048
     Dates: end: 20190605

REACTIONS (7)
  - Chest discomfort [Unknown]
  - Thirst [Unknown]
  - Fatigue [Unknown]
  - Dizziness [Unknown]
  - Hypotension [Recovered/Resolved]
  - Cough [Unknown]
  - Off label use [Unknown]
